FAERS Safety Report 4763610-8 (Version None)
Quarter: 2005Q3

REPORT INFORMATION
  Report Type: 
  Country: None (occurrence: None)
  Receive Date: 20050908
  Receipt Date: 20050829
  Transmission Date: 20060218
  Serious: Yes (Hospitalization)
  Sender: FDA-Public Use
  Company Number: PHEH2005US09628

PATIENT
  Age: 45 Year
  Sex: Female

DRUGS (1)
  1. ENABLEX [Suspect]
     Indication: HYPERTONIC BLADDER
     Dosage: 7.5 MG, QD
     Dates: start: 20050825, end: 20050828

REACTIONS (6)
  - ABDOMINAL PAIN [None]
  - APPENDICITIS [None]
  - BACK PAIN [None]
  - RASH [None]
  - SWELLING FACE [None]
  - VISION BLURRED [None]
